FAERS Safety Report 21168382 (Version 1)
Quarter: 2022Q3

REPORT INFORMATION
  Report Type: Spontaneous
  Country: AU (occurrence: AU)
  Receive Date: 20220803
  Receipt Date: 20220803
  Transmission Date: 20221027
  Serious: Yes (Other)
  Sender: FDA-Public Use
  Company Number: AU-009507513-2207AUS007246

PATIENT
  Age: 66 Year
  Sex: Female
  Weight: 104 kg

DRUGS (4)
  1. LAGEVRIO [Suspect]
     Active Substance: MOLNUPIRAVIR
     Indication: COVID-19 treatment
     Dosage: 4 TAB ORALLY, TWICE DAILY
     Route: 048
     Dates: start: 20220714, end: 20220714
  2. CRESTOR [Concomitant]
     Active Substance: ROSUVASTATIN CALCIUM
     Dosage: 10 MG TAB, DAILY
  3. DIABEX [Concomitant]
     Active Substance: METFORMIN HYDROCHLORIDE
     Dosage: 500 MG TAB, DAILY
  4. METOPROLOL [Concomitant]
     Active Substance: METOPROLOL
     Dosage: 150 MG TAB, DAILY

REACTIONS (3)
  - Dysgeusia [Unknown]
  - Vomiting [Recovered/Resolved]
  - Drug intolerance [Unknown]

NARRATIVE: CASE EVENT DATE: 20220714
